FAERS Safety Report 7745949-7 (Version None)
Quarter: 2011Q3

REPORT INFORMATION
  Report Type: 
  Country: None (occurrence: None)
  Receive Date: 20110913
  Receipt Date: 20110908
  Transmission Date: 20111222
  Serious: Yes (Other)
  Sender: FDA-Public Use
  Company Number: ES-SANOFI-AVENTIS-2011SA058462

PATIENT
  Age: 31 Year
  Sex: Female

DRUGS (6)
  1. ACETAMINOPHEN [Suspect]
     Route: 042
     Dates: start: 20110204, end: 20110215
  2. NOLOTIL [Concomitant]
     Route: 042
     Dates: start: 20110122, end: 20110215
  3. LINEZOLID [Suspect]
     Indication: SEPSIS
     Route: 042
     Dates: start: 20110122, end: 20110211
  4. ENOXAPARIN SODIUM [Suspect]
     Route: 058
     Dates: start: 20110122, end: 20110215
  5. CLINDAMYCIN [Suspect]
     Indication: SEPSIS
     Route: 042
     Dates: start: 20110122, end: 20110207
  6. OMEPRAZOLE [Suspect]
     Route: 048
     Dates: start: 20110122, end: 20110215

REACTIONS (1)
  - HEPATOTOXICITY [None]
